FAERS Safety Report 9194083 (Version 1)
Quarter: 2013Q1

REPORT INFORMATION
  Report Type: Spontaneous
  Country: IN (occurrence: IN)
  Receive Date: 20130327
  Receipt Date: 20130327
  Transmission Date: 20140127
  Serious: Yes (Other)
  Sender: FDA-Public Use
  Company Number: IN-ELI_LILLY_AND_COMPANY-IN201303005787

PATIENT
  Age: 1 Day
  Sex: 0

DRUGS (6)
  1. HUMALOG LISPRO [Suspect]
     Indication: GESTATIONAL DIABETES
     Dosage: UNK, TID
     Route: 064
     Dates: start: 20121120
  2. HUMALOG LISPRO [Suspect]
     Indication: GESTATIONAL DIABETES
     Dosage: UNK, TID
     Route: 064
     Dates: start: 20121120
  3. IRON [Concomitant]
     Route: 064
  4. IRON [Concomitant]
     Route: 064
  5. FOLIC ACID [Concomitant]
     Route: 064
  6. FOLIC ACID [Concomitant]
     Route: 064

REACTIONS (2)
  - Umbilical cord abnormality [Recovered/Resolved]
  - Foetal exposure during pregnancy [Recovered/Resolved]
